FAERS Safety Report 7933098-4 (Version None)
Quarter: 2011Q4

REPORT INFORMATION
  Report Type: 
  Country: None (occurrence: None)
  Receive Date: 20111122
  Receipt Date: 20111114
  Transmission Date: 20120403
  Serious: Yes (Other)
  Sender: FDA-Public Use
  Company Number: PHEH2011US009493

PATIENT
  Sex: Male

DRUGS (1)
  1. GLEEVEC [Suspect]
     Indication: ABDOMINAL NEOPLASM
     Dosage: 400 MG, DAILY
     Route: 048
     Dates: start: 20100910

REACTIONS (2)
  - SKIN CANCER [None]
  - NEOPLASM MALIGNANT [None]
